FAERS Safety Report 16384615 (Version 2)
Quarter: 2019Q3

REPORT INFORMATION
  Report Type: Spontaneous
  Country: JP (occurrence: JP)
  Receive Date: 20190603
  Receipt Date: 20190712
  Transmission Date: 20191004
  Serious: Yes (Hospitalization)
  Sender: FDA-Public Use
  Company Number: JP-JNJFOC-20190544145

PATIENT
  Age: 46 Year
  Sex: Male

DRUGS (2)
  1. TAKECAB [Concomitant]
     Active Substance: VONOPRAZAN FUMURATE
  2. XARELTO [Suspect]
     Active Substance: RIVAROXABAN
     Indication: PORTAL VEIN OCCLUSION
     Route: 048
     Dates: start: 20180529, end: 20190529

REACTIONS (5)
  - Discomfort [Recovered/Resolved]
  - Pyrexia [Recovered/Resolved]
  - International normalised ratio increased [Recovered/Resolved]
  - Product use in unapproved indication [Unknown]
  - Off label use [Unknown]

NARRATIVE: CASE EVENT DATE: 20190530
